FAERS Safety Report 10584466 (Version 1)
Quarter: 2014Q4

REPORT INFORMATION
  Report Type: Spontaneous
  Country: US (occurrence: US)
  Receive Date: 20141114
  Receipt Date: 20141114
  Transmission Date: 20150529
  Serious: Yes (Disabling)
  Sender: FDA-Public Use
  Company Number: US-ENDO PHARMACEUTICALS INC.-VANT20140007

PATIENT
  Sex: Male

DRUGS (1)
  1. VANTAS [Suspect]
     Active Substance: HISTRELIN ACETATE
     Indication: PRODUCT USED FOR UNKNOWN INDICATION
     Route: 058

REACTIONS (1)
  - Fatigue [Not Recovered/Not Resolved]
